FAERS Safety Report 20680402 (Version 1)
Quarter: 2022Q2

REPORT INFORMATION
  Report Type: Spontaneous
  Country: US (occurrence: None)
  Receive Date: 20220406
  Receipt Date: 20220406
  Transmission Date: 20220721
  Serious: No
  Sender: FDA-Public Use
  Company Number: US-Merz Pharmaceuticals GmbH-22-00861

PATIENT
  Sex: Female

DRUGS (5)
  1. XEOMIN [Suspect]
     Active Substance: INCOBOTULINUMTOXINA
     Indication: Skin wrinkling
     Dates: start: 20220317, end: 20220317
  2. BOTOX [Concomitant]
     Active Substance: ONABOTULINUMTOXINA
     Dates: start: 2018, end: 2018
  3. BOTOX [Concomitant]
     Active Substance: ONABOTULINUMTOXINA
     Dates: start: 2018
  4. DYSPORT [Concomitant]
     Active Substance: ABOBOTULINUMTOXINA
     Dates: start: 2018, end: 2018
  5. DYSPORT [Concomitant]
     Active Substance: ABOBOTULINUMTOXINA
     Dates: start: 2018

REACTIONS (6)
  - Feeling abnormal [Unknown]
  - Injection site nodule [Unknown]
  - Injection site irritation [Unknown]
  - Muscular weakness [Not Recovered/Not Resolved]
  - Injection site pain [Unknown]
  - Injection site swelling [Unknown]

NARRATIVE: CASE EVENT DATE: 20220301
